FAERS Safety Report 10357944 (Version 1)
Quarter: 2014Q3

REPORT INFORMATION
  Report Type: Spontaneous
  Country: FR (occurrence: FR)
  Receive Date: 20140801
  Receipt Date: 20140801
  Transmission Date: 20150326
  Serious: Yes (Hospitalization)
  Sender: FDA-Public Use
  Company Number: FR-BRISTOL-MYERS SQUIBB COMPANY-21245774

PATIENT
  Age: 65 Year
  Sex: Female

DRUGS (2)
  1. CORTANCYL [Suspect]
     Active Substance: PREDNISONE
     Indication: DIARRHOEA
     Dosage: 1DF=40 TO 80 MG?22JAN14
     Route: 048
     Dates: start: 20131215, end: 20140427
  2. YERVOY [Suspect]
     Active Substance: IPILIMUMAB
     Indication: METASTATIC MALIGNANT MELANOMA
     Dosage: 1DF=193 MG ?2ND COURSE-13DEC2013, ?3RD COURSE- 03JAN2014 ?4TH COURSE-24JAN14
     Route: 042
     Dates: start: 20131121, end: 20140124

REACTIONS (2)
  - Diarrhoea [Recovering/Resolving]
  - Nocardiosis [Recovering/Resolving]

NARRATIVE: CASE EVENT DATE: 20131213
